FAERS Safety Report 24715950 (Version 1)
Quarter: 2024Q4

REPORT INFORMATION
  Report Type: Spontaneous
  Country: TW (occurrence: TW)
  Receive Date: 20241210
  Receipt Date: 20241210
  Transmission Date: 20250115
  Serious: Yes (Hospitalization)
  Sender: STRIDES
  Company Number: TW-STRIDES ARCOLAB LIMITED-2024SP016295

PATIENT
  Age: 75 Year
  Sex: Female

DRUGS (3)
  1. VALGANCICLOVIR HYDROCHLORIDE [Suspect]
     Active Substance: VALGANCICLOVIR HYDROCHLORIDE
     Indication: Infection
     Dosage: UNK, (ONE-WEEK COURSE)
     Route: 065
  2. MESALAMINE [Concomitant]
     Active Substance: MESALAMINE
     Indication: Colitis ulcerative
     Dosage: UNK
     Route: 065
  3. CEFTRIAXONE [Concomitant]
     Active Substance: CEFTRIAXONE
     Indication: Infection
     Dosage: UNK
     Route: 065

REACTIONS (3)
  - Gastrointestinal mucormycosis [Unknown]
  - Cytomegalovirus infection [Unknown]
  - Drug ineffective [Unknown]
